FAERS Safety Report 14443492 (Version 2)
Quarter: 2018Q3

REPORT INFORMATION
  Report Type: Report from Study
  Country: US (occurrence: US)
  Receive Date: 20180125
  Receipt Date: 20180724
  Transmission Date: 20181010
  Serious: No
  Sender: FDA-Public Use
  Company Number: US-AMGEN-USASL2017159644

PATIENT
  Age: 33 Year
  Sex: Female

DRUGS (1)
  1. KYPROLIS [Suspect]
     Active Substance: CARFILZOMIB
     Indication: PLASMA CELL MYELOMA
     Dosage: 36 MG/M2, 2 DAYS PER WEEK, 3 WEEKS ON, 1 WEEK OFF
     Route: 065

REACTIONS (3)
  - Cognitive disorder [Unknown]
  - Off label use [Unknown]
  - Fatigue [Unknown]
